FAERS Safety Report 16844415 (Version 1)
Quarter: 2019Q4

REPORT INFORMATION
  Report Type: Spontaneous
  Country: US (occurrence: US)
  Receive Date: 20190923
  Receipt Date: 20190923
  Transmission Date: 20200122
  Serious: Yes (Other)
  Sender: FDA-Public Use
  Company Number: None

PATIENT
  Age: 62 Year
  Sex: Female
  Weight: 108.13 kg

DRUGS (17)
  1. FIBER CHOICE [Concomitant]
  2. LOSARTAN. [Concomitant]
     Active Substance: LOSARTAN
  3. CHROMIUM [Concomitant]
     Active Substance: CHROMIC CHLORIDE\CHROMIUM
  4. RANITIDINE. [Concomitant]
     Active Substance: RANITIDINE
  5. VITAMIN D3 [Concomitant]
     Active Substance: CHOLECALCIFEROL
  6. VITAMIN B6 [Concomitant]
     Active Substance: PYRIDOXINE HYDROCHLORIDE
  7. ASPIRIN. [Concomitant]
     Active Substance: ASPIRIN
  8. IRON [Concomitant]
     Active Substance: IRON
  9. PREGABALIN. [Concomitant]
     Active Substance: PREGABALIN
  10. IMATINIB. [Suspect]
     Active Substance: IMATINIB MESYLATE
     Indication: CHRONIC MYELOID LEUKAEMIA
     Route: 048
     Dates: start: 20190214
  11. CETIRIZINE [Concomitant]
     Active Substance: CETIRIZINE HYDROCHLORIDE
  12. HYOSCYAMINE. [Concomitant]
     Active Substance: HYOSCYAMINE
  13. PANTOPRAZOLE [Concomitant]
     Active Substance: PANTOPRAZOLE
  14. MULTIVITAMIN [Concomitant]
     Active Substance: VITAMINS
  15. RAMIPRIL. [Concomitant]
     Active Substance: RAMIPRIL
  16. SEREVENT DISKUS [Concomitant]
     Active Substance: SALMETEROL XINAFOATE
  17. TIZANIDINE. [Concomitant]
     Active Substance: TIZANIDINE

REACTIONS (2)
  - Nausea [None]
  - Vomiting [None]
